FAERS Safety Report 6566419-8 (Version None)
Quarter: 2010Q1

REPORT INFORMATION
  Report Type: 
  Country: None (occurrence: None)
  Receive Date: 20100202
  Receipt Date: 20100119
  Transmission Date: 20100710
  Serious: Yes (Other)
  Sender: FDA-Public Use
  Company Number: PHHY2010US03365

PATIENT
  Sex: Male

DRUGS (2)
  1. GLEEVEC [Suspect]
     Indication: LYMPHOPROLIFERATIVE DISORDER
     Dosage: 300 MG, QD
     Route: 048
     Dates: end: 20091101
  2. HYDREA [Concomitant]

REACTIONS (3)
  - EJECTION FRACTION DECREASED [None]
  - HYPEREOSINOPHILIC SYNDROME [None]
  - RASH [None]
